FAERS Safety Report 22002271 (Version 1)
Quarter: 2023Q1

REPORT INFORMATION
  Report Type: Spontaneous
  Country: FR (occurrence: FR)
  Receive Date: 20230217
  Receipt Date: 20230217
  Transmission Date: 20230417
  Serious: Yes (Other)
  Sender: FDA-Public Use
  Company Number: FR-AUROBINDO-AUR-APL-2023-006764

PATIENT
  Age: 10 Year
  Sex: Male
  Weight: 29 kg

DRUGS (1)
  1. ACETAMINOPHEN [Suspect]
     Active Substance: ACETAMINOPHEN
     Indication: Headache
     Dosage: UNK UNK, TWO TIMES A DAY,(ALL THE TIME HALF TABLET PER INTAKE,,MAX 1G/DAY IN TWO TIMES)
     Route: 048
     Dates: start: 202302, end: 20230205

REACTIONS (4)
  - Blood alkaline phosphatase increased [Unknown]
  - Aspartate aminotransferase increased [Unknown]
  - Alanine aminotransferase increased [Unknown]
  - Wrong technique in product usage process [Unknown]

NARRATIVE: CASE EVENT DATE: 20230205
